FAERS Safety Report 9444768 (Version 2)
Quarter: 2013Q3

REPORT INFORMATION
  Report Type: Spontaneous
  Country: US (occurrence: US)
  Receive Date: 20130807
  Receipt Date: 20130904
  Transmission Date: 20140515
  Serious: Yes (Death, Other)
  Sender: FDA-Public Use
  Company Number: US-ASTELLAS-2013US008265

PATIENT
  Sex: Male

DRUGS (2)
  1. PROGRAF [Suspect]
     Indication: RENAL TRANSPLANT
     Dosage: UNK
     Route: 048
  2. IMMUNOSUPPRESSANTS [Concomitant]
     Indication: TRANSPLANT
     Dosage: UNK
     Route: 065

REACTIONS (2)
  - Death [Fatal]
  - Concomitant disease aggravated [Unknown]
